FAERS Safety Report 17163158 (Version 1)
Quarter: 2019Q4

REPORT INFORMATION
  Report Type: Spontaneous
  Country: JP (occurrence: JP)
  Receive Date: 20191217
  Receipt Date: 20191217
  Transmission Date: 20200122
  Serious: Yes (Other)
  Sender: FDA-Public Use
  Company Number: JP-ELI_LILLY_AND_COMPANY-JP201912005795

PATIENT
  Age: 65 Year
  Sex: Male

DRUGS (1)
  1. CYRAMZA [Suspect]
     Active Substance: RAMUCIRUMAB
     Indication: HEPATOCELLULAR CARCINOMA
     Dosage: UNK
     Route: 041

REACTIONS (7)
  - Abdominal distension [Unknown]
  - Weight decreased [Unknown]
  - Epistaxis [Unknown]
  - Fatigue [Unknown]
  - Hypertension [Unknown]
  - Constipation [Unknown]
  - Lymphocyte count decreased [Unknown]
